FAERS Safety Report 8511449 (Version 2)
Quarter: 2012Q4

REPORT INFORMATION
  Report Type: 
  Country: US (occurrence: US)
  Receive Date: 20120413
  Receipt Date: 20121228
  Transmission Date: 20130627
  Serious: No
  Sender: FDA-Public Use
  Company Number: US-ASTRAZENECA-2011SE59517

PATIENT
  Age: 63 Year
  Sex: Female

DRUGS (4)
  1. NEXIUM [Suspect]
     Dosage: GENERICS
     Route: 048
  2. OTC PRODUCTS [Concomitant]
  3. GENERIC PRODUCTS [Concomitant]
  4. ZANTAC [Concomitant]

REACTIONS (6)
  - Aphagia [Unknown]
  - Pain [Unknown]
  - Rotator cuff syndrome [Unknown]
  - Malaise [Unknown]
  - Drug ineffective [Unknown]
  - Drug dose omission [Unknown]
